FAERS Safety Report 6894348-9 (Version None)
Quarter: 2010Q3

REPORT INFORMATION
  Report Type: 
  Country: None (occurrence: None)
  Receive Date: 20100802
  Receipt Date: 20100722
  Transmission Date: 20110219
  Serious: Yes (Hospitalization)
  Sender: FDA-Public Use
  Company Number: US-ASTRAZENECA-2009UW01032

PATIENT
  Age: 897 Month
  Sex: Female

DRUGS (11)
  1. TOPROL-XL [Suspect]
     Route: 048
  2. CRESTOR [Suspect]
     Indication: HYPERCHOLESTEROLAEMIA
     Route: 048
  3. LISINOPRIL [Concomitant]
     Route: 048
  4. WATER PILL [Concomitant]
  5. ZETIA [Concomitant]
  6. NORVASC [Concomitant]
  7. VITAMIN TAB [Concomitant]
  8. CALCIUM W/VITAMIN D [Concomitant]
  9. LORATADINE [Concomitant]
  10. ASPIRIN [Concomitant]
  11. LOVAZA [Concomitant]

REACTIONS (3)
  - CAROTID ARTERY DISEASE [None]
  - HIP ARTHROPLASTY [None]
  - URETERAL STENT INSERTION [None]
